FAERS Safety Report 6615498-8 (Version None)
Quarter: 2010Q1

REPORT INFORMATION
  Report Type: 
  Country: None (occurrence: None)
  Receive Date: 20100305
  Receipt Date: 20080721
  Transmission Date: 20100710
  Serious: No
  Sender: FDA-Public Use
  Company Number: IT-BAYER-200810967BCC

PATIENT
  Age: 72 Year
  Sex: Male

DRUGS (4)
  1. ASPIRIN [Suspect]
     Indication: NASOPHARYNGITIS
     Dosage: TOTAL DAILY DOSE: 500 MG  UNIT DOSE: 500 MG
     Route: 048
     Dates: start: 20080101, end: 20080101
  2. ACTIFED [Suspect]
     Indication: NASOPHARYNGITIS
     Route: 048
     Dates: start: 20070101, end: 20080101
  3. ARCOXIA [Suspect]
     Indication: OSTEOARTHRITIS
     Route: 048
     Dates: start: 20071230, end: 20080101
  4. MAALOX [Concomitant]
     Route: 048
     Dates: start: 20080101, end: 20080101

REACTIONS (3)
  - ANAEMIA [None]
  - DUODENAL ULCER [None]
  - GASTRITIS EROSIVE [None]
